FAERS Safety Report 9032391 (Version 2)
Quarter: 2013Q1

REPORT INFORMATION
  Report Type: Report from Study
  Country: JP (occurrence: JP)
  Receive Date: 20130125
  Receipt Date: 20130131
  Transmission Date: 20140127
  Serious: Yes (Death)
  Sender: FDA-Public Use
  Company Number: JP-B.I. PHARMACEUTICALS,INC./RIDGEFIELD-2013-BI-01595NB

PATIENT
  Sex: Male
  Weight: 49 kg

DRUGS (3)
  1. PRAZAXA [Suspect]
     Indication: ATRIAL FIBRILLATION
     Dosage: 300 MG
     Route: 048
     Dates: start: 20120511
  2. PRAZAXA [Suspect]
     Indication: PROPHYLAXIS
  3. PRAZAXA [Suspect]
     Indication: PROPHYLAXIS

REACTIONS (3)
  - Cardiac failure [Fatal]
  - Heat illness [Unknown]
  - Decreased appetite [Unknown]
